FAERS Safety Report 13884926 (Version 2)
Quarter: 2017Q3

REPORT INFORMATION
  Report Type: Report from Study
  Country: US (occurrence: US)
  Receive Date: 20170821
  Receipt Date: 20170825
  Transmission Date: 20171127
  Serious: Yes (Other)
  Sender: FDA-Public Use
  Company Number: PHEH2017US026072

PATIENT
  Sex: Male

DRUGS (2)
  1. GLEEVEC [Suspect]
     Active Substance: IMATINIB MESYLATE
     Indication: GASTROINTESTINAL NEOPLASM
     Dosage: 400 MG, QD
     Route: 048
  2. GLEEVEC [Suspect]
     Active Substance: IMATINIB MESYLATE
     Dosage: 400 UNK, UNK
     Route: 048

REACTIONS (5)
  - Diarrhoea [Unknown]
  - Constipation [Recovering/Resolving]
  - Pain [Unknown]
  - Haematochezia [Unknown]
  - Faeces hard [Unknown]
